FAERS Safety Report 4932796-4 (Version None)
Quarter: 2006Q1

REPORT INFORMATION
  Report Type: 
  Country: None (occurrence: None)
  Receive Date: 20060306
  Receipt Date: 20060130
  Transmission Date: 20060701
  Serious: Yes (Hospitalization)
  Sender: FDA-Public Use
  Company Number: 2006AP00529

PATIENT
  Age: 47 Year
  Sex: Male
  Weight: 63.8 kg

DRUGS (1)
  1. MEROPEN [Suspect]
     Indication: PNEUMONIA
     Route: 041
     Dates: start: 20051205, end: 20051208

REACTIONS (3)
  - MOOD ALTERED [None]
  - NYSTAGMUS [None]
  - VERTIGO [None]
